FAERS Safety Report 9767554 (Version 3)
Quarter: 2015Q3

REPORT INFORMATION
  Report Type: Spontaneous
  Country: US (occurrence: US)
  Receive Date: 20131217
  Receipt Date: 20150731
  Transmission Date: 20151125
  Serious: Yes (Other)
  Sender: FDA-Public Use
  Company Number: US-GILEAD-2009-0024249

PATIENT
  Age: 35 Year
  Sex: Male
  Weight: 54.43 kg

DRUGS (1)
  1. VIREAD [Suspect]
     Active Substance: TENOFOVIR DISOPROXIL FUMARATE
     Indication: HIV INFECTION
     Dates: start: 2003, end: 2009

REACTIONS (3)
  - Blood phosphorus decreased [Recovered/Resolved]
  - Bone pain [Recovered/Resolved]
  - Fanconi syndrome acquired [Unknown]

NARRATIVE: CASE EVENT DATE: 200711
